FAERS Safety Report 7049147-4 (Version None)
Quarter: 2010Q4

REPORT INFORMATION
  Report Type: 
  Country: None (occurrence: None)
  Receive Date: 20101012
  Receipt Date: 20100928
  Transmission Date: 20110411
  Serious: Yes (Hospitalization, Disabling, Other)
  Sender: FDA-Public Use
  Company Number: DSJ-2010-17913

PATIENT
  Age: 50 Year
  Sex: Male

DRUGS (1)
  1. BENICAR [Suspect]
     Indication: HYPERTENSION
     Dosage: 20 MG (20 MG,1 IN 1 D),PER ORAL
     Route: 048
     Dates: start: 20050101

REACTIONS (4)
  - BEDRIDDEN [None]
  - BRAIN NEOPLASM [None]
  - HAEMORRHAGIC STROKE [None]
  - ISCHAEMIC STROKE [None]
